FAERS Safety Report 5977403-7 (Version None)
Quarter: 2008Q4

REPORT INFORMATION
  Report Type: 
  Country: None (occurrence: None)
  Receive Date: 20081203
  Receipt Date: 20081128
  Transmission Date: 20090506
  Serious: Yes (Death, Hospitalization, Other)
  Sender: FDA-Public Use
  Company Number: PHBS2003JP09355

PATIENT
  Sex: Male
  Weight: 36.5 kg

DRUGS (8)
  1. GLEEVEC [Suspect]
     Indication: GASTROINTESTINAL STROMAL TUMOUR
     Dosage: 400 MG, QD
     Route: 048
     Dates: start: 20030731, end: 20030822
  2. GLEEVEC [Suspect]
     Indication: NEOPLASM MALIGNANT
     Dosage: 400 MG/D
     Route: 048
     Dates: start: 20030922, end: 20030930
  3. GLEEVEC [Suspect]
     Dosage: 200 MG/D
     Route: 048
     Dates: start: 20031031
  4. GLEEVEC [Suspect]
     Dosage: 200 MG/DAY
     Route: 048
     Dates: start: 20060701, end: 20070419
  5. DAI-KENCHU-TO [Concomitant]
  6. LAC B [Concomitant]
  7. LOXONIN [Concomitant]
  8. CYTOTEC [Concomitant]

REACTIONS (19)
  - ABDOMINAL PAIN [None]
  - ASCITES [None]
  - C-REACTIVE PROTEIN INCREASED [None]
  - CONTUSION [None]
  - EPISTAXIS [None]
  - FALL [None]
  - GENERALISED OEDEMA [None]
  - HAEMORRHAGE SUBCUTANEOUS [None]
  - HEPATIC ENZYME INCREASED [None]
  - LIVER DISORDER [None]
  - MALAISE [None]
  - NAUSEA [None]
  - PLATELET COUNT DECREASED [None]
  - PNEUMONIA [None]
  - RASH [None]
  - RESPIRATORY DISORDER [None]
  - TUBERCULOSIS [None]
  - TUMOUR HAEMORRHAGE [None]
  - VOMITING [None]
